FAERS Safety Report 10675050 (Version 1)
Quarter: 2014Q4

REPORT INFORMATION
  Report Type: Spontaneous
  Country: US (occurrence: US)
  Receive Date: 20141224
  Receipt Date: 20141224
  Transmission Date: 20150529
  Serious: No
  Sender: FDA-Public Use
  Company Number: US-PFIZER INC-2014352352

PATIENT
  Age: 89 Year
  Sex: Female

DRUGS (6)
  1. HEMAX [Concomitant]
  2. PREMARIN [Suspect]
     Active Substance: ESTROGENS, CONJUGATED
  3. PERFOROMIST [Concomitant]
     Active Substance: FORMOTEROL FUMARATE DIHYDRATE
  4. PREDNISONE. [Concomitant]
     Active Substance: PREDNISONE
  5. COMBIVENT [Concomitant]
     Active Substance: ALBUTEROL SULFATE\IPRATROPIUM BROMIDE
  6. OXYGEN. [Concomitant]
     Active Substance: OXYGEN
     Dosage: UNK

REACTIONS (4)
  - Vulvovaginal pruritus [Unknown]
  - Insomnia [Unknown]
  - Memory impairment [Unknown]
  - Vulvovaginal burning sensation [Unknown]
